FAERS Safety Report 9988891 (Version 2)
Quarter: 2014Q1

REPORT INFORMATION
  Report Type: Report from Study
  Country: US (occurrence: US)
  Receive Date: 20140310
  Receipt Date: 20140310
  Transmission Date: 20141002
  Serious: No
  Sender: FDA-Public Use
  Company Number: US-ABBVIE-13P-163-1099363-00

PATIENT
  Age: 62 Year
  Sex: Female

DRUGS (17)
  1. HUMIRA [Suspect]
     Indication: RHEUMATOID ARTHRITIS
     Dates: start: 20130419
  2. MOBIC [Concomitant]
     Indication: ARTHRITIS
  3. HYDROCHLOROTHIAZIDE [Concomitant]
     Indication: FLUID RETENTION
     Route: 048
  4. LOTREL [Concomitant]
     Indication: BLOOD PRESSURE
     Dosage: 5-20MG
  5. AMITRIPTYLINE [Concomitant]
     Indication: PRODUCT USED FOR UNKNOWN INDICATION
     Dosage: AT BEDTIME
  6. CLONAZEPAM [Concomitant]
     Indication: NERVOUSNESS
  7. NEXIUM [Concomitant]
     Indication: GASTROOESOPHAGEAL REFLUX DISEASE
  8. ASMANEX [Concomitant]
     Indication: DYSPNOEA
  9. SPIRIVA [Concomitant]
     Indication: DYSPNOEA
  10. CRESTOR [Concomitant]
     Indication: BLOOD CHOLESTEROL
  11. SINGULAIR [Concomitant]
     Indication: HYPERSENSITIVITY
  12. TRIPLEX [Concomitant]
     Indication: BLOOD TRIGLYCERIDES
  13. PROAIR [Concomitant]
     Indication: DYSPNOEA
  14. SULFASALAZINE [Concomitant]
     Indication: ARTHRITIS
  15. PREDNISONE [Concomitant]
     Indication: ARTHRITIS
  16. IPATROPIUM BROMIDE [Concomitant]
     Indication: PRODUCT USED FOR UNKNOWN INDICATION
  17. DELESTROGEN [Concomitant]
     Indication: PRODUCT USED FOR UNKNOWN INDICATION
     Dosage: 1CC

REACTIONS (6)
  - Injection site pain [Recovered/Resolved]
  - Injection site pain [Recovered/Resolved]
  - Injection site swelling [Not Recovered/Not Resolved]
  - Injection site pain [Not Recovered/Not Resolved]
  - Injection site pain [Not Recovered/Not Resolved]
  - Injection site pruritus [Not Recovered/Not Resolved]
